FAERS Safety Report 10290058 (Version 1)
Quarter: 2014Q3

REPORT INFORMATION
  Report Type: Spontaneous
  Country: US (occurrence: None)
  Receive Date: 20140707
  Receipt Date: 20140707
  Transmission Date: 20150326
  Serious: Yes (Other)
  Sender: FDA-Public Use
  Company Number: None

PATIENT
  Age: 60 Year
  Sex: Female
  Weight: 78.47 kg

DRUGS (1)
  1. SMZ/TMP DS 800-160 TAB INTERPHARM GENERIC SULFAMETHOXAZOLE/TRIMETHOPRIM [Suspect]
     Active Substance: SULFAMETHOXAZOLE\TRIMETHOPRIM
     Indication: URINARY TRACT INFECTION
     Dosage: 800-160 TAB2QD, 1 PILL, TWICE DAILY, BY MOUTH
     Route: 048
     Dates: start: 20140703, end: 20140703

REACTIONS (2)
  - Rash macular [None]
  - Rash pruritic [None]

NARRATIVE: CASE EVENT DATE: 20140703
